FAERS Safety Report 12675423 (Version 1)
Quarter: 2016Q3

REPORT INFORMATION
  Report Type: Spontaneous
  Country: CA (occurrence: CA)
  Receive Date: 20160823
  Receipt Date: 20160823
  Transmission Date: 20161109
  Serious: Yes (Disabling)
  Sender: FDA-Public Use
  Company Number: CA-ROCHE-1817962

PATIENT
  Age: 64 Year
  Sex: Male

DRUGS (18)
  1. AVASTIN [Suspect]
     Active Substance: BEVACIZUMAB
     Indication: COLON CANCER METASTATIC
     Dosage: THERAPY DURATION: 41 DAYS
     Route: 042
  2. HYDROCHLOROTHIAZIDE. [Concomitant]
     Active Substance: HYDROCHLOROTHIAZIDE
  3. NOVORAPID [Concomitant]
     Active Substance: INSULIN ASPART
     Route: 065
  4. FLUOROURACIL. [Concomitant]
     Active Substance: FLUOROURACIL
  5. CAMPTOSAR [Concomitant]
     Active Substance: IRINOTECAN HYDROCHLORIDE
     Route: 042
  6. JANUMET XR [Concomitant]
     Active Substance: METFORMIN HYDROCHLORIDE\SITAGLIPTIN PHOSPHATE
     Route: 065
  7. PROCTOSEDYL (CANADA) [Concomitant]
  8. AVAMYS [Concomitant]
     Active Substance: FLUTICASONE FUROATE
     Route: 065
  9. LEVEMIR [Concomitant]
     Active Substance: INSULIN DETEMIR
     Route: 065
  10. RAMIPRIL. [Concomitant]
     Active Substance: RAMIPRIL
  11. CLOTRIMADERM [Concomitant]
     Route: 065
  12. ATIVAN [Concomitant]
     Active Substance: LORAZEPAM
  13. BISOPROLOL [Concomitant]
     Active Substance: BISOPROLOL
  14. ROSUVASTATIN. [Concomitant]
     Active Substance: ROSUVASTATIN
  15. STEMETIL [Concomitant]
     Active Substance: PROCHLORPERAZINE MALEATE
  16. FLAMAZINE [Concomitant]
     Active Substance: SILVER SULFADIAZINE
     Route: 065
  17. LEUCOVORIN. [Concomitant]
     Active Substance: LEUCOVORIN
  18. PANTOLOC [Concomitant]
     Active Substance: PANTOPRAZOLE SODIUM
     Route: 065

REACTIONS (1)
  - Tendon rupture [Unknown]
